FAERS Safety Report 4498270-7 (Version None)
Quarter: 2004Q3

REPORT INFORMATION
  Report Type: 
  Country: None (occurrence: None)
  Receive Date: 20040927
  Receipt Date: 20040611
  Transmission Date: 20050211
  Serious: No
  Sender: FDA-Public Use
  Company Number: USA040669961

PATIENT
  Age: 34 Year
  Sex: Male
  Weight: 86 kg

DRUGS (5)
  1. STRATTERA [Suspect]
     Indication: ATTENTION DEFICIT/HYPERACTIVITY DISORDER
     Dosage: 40 MG DAY
     Dates: start: 20040611
  2. PRILOSEC [Concomitant]
  3. MULTIVITAMIN [Concomitant]
  4. GLUCOSAMINE CHONDROITIN [Concomitant]
  5. LEXAPRO [Concomitant]

REACTIONS (2)
  - DIZZINESS [None]
  - FEELING OF RELAXATION [None]
